FAERS Safety Report 15155860 (Version 1)
Quarter: 2018Q3

REPORT INFORMATION
  Report Type: Spontaneous
  Country: US (occurrence: US)
  Receive Date: 20180717
  Receipt Date: 20180717
  Transmission Date: 20181010
  Serious: Yes (Disabling)
  Sender: FDA-Public Use
  Company Number: US-US WORLDMEDS, LLC-STA_00020187

PATIENT
  Sex: Female

DRUGS (1)
  1. APOMORPHINE HYDROCHLORIDE [Suspect]
     Active Substance: APOMORPHINE HYDROCHLORIDE
     Indication: PARKINSON^S DISEASE

REACTIONS (2)
  - Urinary tract infection [Not Recovered/Not Resolved]
  - Dysgeusia [Not Recovered/Not Resolved]

NARRATIVE: CASE EVENT DATE: 200909
